FAERS Safety Report 5037230-4 (Version None)
Quarter: 2006Q2

REPORT INFORMATION
  Report Type: 
  Country: None (occurrence: None)
  Receive Date: 20060622
  Receipt Date: 20060613
  Transmission Date: 20061013
  Serious: Yes (Hospitalization)
  Sender: FDA-Public Use
  Company Number: TPA2006A00811

PATIENT
  Age: 60 Year
  Sex: Female
  Weight: 78.0187 kg

DRUGS (13)
  1. ACTOS [Suspect]
     Indication: DIABETES MELLITUS NON-INSULIN-DEPENDENT
     Dosage: 45 MG, 1 IN 1 D, PER ORAL
     Route: 048
     Dates: start: 20060308, end: 20060503
  2. PIOGLITAZONE HYDROCH;ORIDE (CODE NOT BROKEN) (PIOGLITAZONE HYDROCHLORI [Suspect]
     Indication: DIABETES MELLITUS NON-INSULIN-DEPENDENT
     Dosage: PER ORAL
     Route: 048
     Dates: end: 20060306
  3. MICARDIS [Concomitant]
  4. METOPROLOL SUCCINATE [Concomitant]
  5. ZOCOR [Concomitant]
  6. OSCAL CALCIUM WITH VIT D (ERGOCALCIFEROL, CALCIUM PHOSPHATE, CALCIUM S [Concomitant]
  7. ASPIRIN [Concomitant]
  8. PLAVIX [Concomitant]
  9. OCUVITE MULTIVITAMIN (ERGOCALCIFEROL, ASCORBIC ACID, FOLIC ACID, THIAM [Concomitant]
  10. VITAMIN E [Concomitant]
  11. FISH OIL (FISH OIL) [Concomitant]
  12. METFORMIN [Concomitant]
  13. AMARYL [Concomitant]

REACTIONS (5)
  - ABDOMINAL DISTENSION [None]
  - BLOOD GLUCOSE INCREASED [None]
  - DYSPNOEA [None]
  - GENERALISED OEDEMA [None]
  - OEDEMA PERIPHERAL [None]
